FAERS Safety Report 13972675 (Version 2)
Quarter: 2017Q4

REPORT INFORMATION
  Report Type: Spontaneous
  Country: US (occurrence: US)
  Receive Date: 20170915
  Receipt Date: 20171011
  Transmission Date: 20180321
  Serious: No
  Sender: FDA-Public Use
  Company Number: US-GLAXOSMITHKLINE-US2017141557

PATIENT
  Sex: Male

DRUGS (1)
  1. VENTOLIN HFA [Suspect]
     Active Substance: ALBUTEROL SULFATE
     Indication: ASTHMA
     Dosage: 1 PUFF(S), PRN
     Route: 055

REACTIONS (7)
  - Overdose [Recovering/Resolving]
  - Product quality issue [Unknown]
  - Tremor [Recovering/Resolving]
  - Vomiting [Unknown]
  - Pain in extremity [Recovering/Resolving]
  - Nausea [Recovering/Resolving]
  - Malaise [Unknown]
